FAERS Safety Report 6986786-0 (Version None)
Quarter: 2010Q3

REPORT INFORMATION
  Report Type: 
  Country: None (occurrence: None)
  Receive Date: 20100915
  Receipt Date: 20090805
  Transmission Date: 20110219
  Serious: No
  Sender: FDA-Public Use
  Company Number: US-WYE-H10476909

PATIENT
  Sex: Female
  Weight: 90.8 kg

DRUGS (6)
  1. PRISTIQ [Suspect]
     Indication: DEPRESSION
     Route: 048
     Dates: start: 20090701
  2. PRISTIQ [Suspect]
     Indication: ANXIETY
  3. PRISTIQ [Suspect]
     Indication: OBSESSIVE-COMPULSIVE DISORDER
  4. KLONOPIN [Concomitant]
  5. AMBIEN [Concomitant]
  6. PROZAC [Concomitant]

REACTIONS (1)
  - MEDICATION RESIDUE [None]
